FAERS Safety Report 8956124 (Version 1)
Quarter: 2012Q4

REPORT INFORMATION
  Report Type: 
  Country: JP (occurrence: JP)
  Receive Date: 20121210
  Receipt Date: 20121210
  Transmission Date: 20130627
  Serious: Yes (Disabling)
  Sender: FDA-Public Use
  Company Number: JP-ASTRAZENECA-2012SE89927

PATIENT

DRUGS (3)
  1. TENORMIN [Suspect]
     Route: 048
  2. OMEPRAL [Concomitant]
     Route: 048
  3. OTHER DRUGS [Concomitant]

REACTIONS (1)
  - Melanoderma [Unknown]
